FAERS Safety Report 8315061-7 (Version None)
Quarter: 2012Q2

REPORT INFORMATION
  Report Type: 
  Country: None (occurrence: None)
  Receive Date: 20120426
  Receipt Date: 20120419
  Transmission Date: 20120825
  Serious: Yes (Other)
  Sender: FDA-Public Use
  Company Number: DE-JNJFOC-20120211649

PATIENT
  Sex: Female
  Weight: 59 kg

DRUGS (6)
  1. XARELTO [Suspect]
     Indication: CEREBROVASCULAR ACCIDENT PROPHYLAXIS
     Route: 048
     Dates: start: 20120201, end: 20120210
  2. METOPROLOL TARTRATE AND HYDROCHLOROTHIAZIDE [Concomitant]
  3. XARELTO [Suspect]
     Indication: ATRIAL FIBRILLATION
     Route: 048
     Dates: start: 20120201, end: 20120210
  4. LEVOTHYROXINE SODIUM [Concomitant]
  5. FLECAINIDE ACETATE [Concomitant]
  6. CANDESARTAN CILEXETIL [Concomitant]

REACTIONS (2)
  - ASPARTATE AMINOTRANSFERASE INCREASED [None]
  - ALANINE AMINOTRANSFERASE INCREASED [None]
